FAERS Safety Report 4618250-8 (Version None)
Quarter: 2005Q1

REPORT INFORMATION
  Report Type: 
  Country: None (occurrence: None)
  Receive Date: 20050324
  Receipt Date: 20040922
  Transmission Date: 20050727
  Serious: Yes (Hospitalization)
  Sender: FDA-Public Use
  Company Number: DZ-ABBOTT-04P-003-0274414-00

PATIENT
  Age: 9 Month
  Sex: Male

DRUGS (4)
  1. DEPAKENE [Suspect]
     Indication: GRAND MAL CONVULSION
     Dosage: 200 MG/ML
     Route: 048
     Dates: start: 20040810, end: 20040816
  2. DEPAKENE [Suspect]
     Dosage: 200 MG/ML
     Route: 048
     Dates: start: 20040817, end: 20040823
  3. DEPAKENE [Suspect]
     Dosage: 200 MG/ML
     Route: 048
     Dates: start: 20040824, end: 20040830
  4. PHENOBARBITAL [Concomitant]
     Indication: PARTIAL SEIZURES
     Route: 048
     Dates: end: 20040101

REACTIONS (3)
  - ACCIDENTAL OVERDOSE [None]
  - COMA [None]
  - GRAND MAL CONVULSION [None]
